FAERS Safety Report 10240688 (Version 1)
Quarter: 2014Q1

REPORT INFORMATION
  Report Type: Spontaneous
  Country: US (occurrence: None)
  Receive Date: 20140306
  Receipt Date: 20140306
  Transmission Date: 20141002
  Serious: Yes (Hospitalization)
  Sender: FDA-Public Use
  Company Number: 163-21880-13040008

PATIENT
  Age: 71 Year
  Sex: Male

DRUGS (9)
  1. REVLIMID (LENALIDOMIDE) (15 MILLIGRAM, CAPSULES) [Suspect]
     Indication: PLASMA CELL MYELOMA
     Dosage: 15 MG, 21 IN 21 D
     Route: 048
     Dates: start: 20100325
  2. ACYCLOVIR (ACICLOVIR) (UNKNOWN) [Concomitant]
  3. ASPIRIN LOW DOSE (ACETYLSALICYLIC ACID) (UNKNOWN) [Concomitant]
  4. BACTRIM DS (BACTRIM) (UNKNOWN) [Concomitant]
  5. DEXAMETHASONE (DEXAMETHASONE) (UNKNOWN) [Concomitant]
  6. GAMMAGARD (IMMUNOGLOBULIN HUMAN NORMAL) (UNKNOWN) [Concomitant]
  7. JANUVIA (SITAGLIPTIN PHOSPHATE) (UNKNOWN) [Concomitant]
  8. LYRICA (PREGABALIN) (UNKNOWN) [Concomitant]
  9. MAGNESIUM OXIDE (MAGNESIUM OXIDE) (UNKNOWN) [Concomitant]

REACTIONS (1)
  - Pneumonia fungal [None]
